FAERS Safety Report 8362901-1 (Version None)
Quarter: 2012Q1

REPORT INFORMATION
  Report Type: 
  Country: None (occurrence: None)
  Receive Date: 20120323
  Receipt Date: 20110523
  Transmission Date: 20120608
  Serious: Yes (Hospitalization, Other)
  Sender: FDA-Public Use
  Company Number: 163-21880-11042806

PATIENT
  Age: 45 Year
  Sex: Male
  Weight: 83.0083 kg

DRUGS (14)
  1. TEMAZEPAM [Concomitant]
  2. ALBUTEROL [Concomitant]
  3. HYDROMET (ALDORIL) [Concomitant]
  4. LOMOTIL [Concomitant]
  5. MUCINEX [Concomitant]
  6. CITALOPRAM HYDROBROMIDE [Concomitant]
  7. FLONASE [Concomitant]
  8. BACTRIM [Concomitant]
  9. ACYCLOVIR [Concomitant]
  10. ATIVAN [Concomitant]
  11. ASA (ACETYLSALISYCLIC ACID) [Concomitant]
  12. REVLIMID [Suspect]
     Indication: CHRONIC LYMPHOCYTIC LEUKAEMIA
     Dosage: 5 MG, 1 IN 1 D, PO
     Route: 048
     Dates: start: 20110102, end: 20110101
  13. VITAMIN D [Concomitant]
  14. PRILOSEC [Concomitant]

REACTIONS (5)
  - WHITE BLOOD CELL COUNT DECREASED [None]
  - PNEUMONIA [None]
  - RASH MORBILLIFORM [None]
  - DRUG INEFFECTIVE [None]
  - CHRONIC LYMPHOCYTIC LEUKAEMIA [None]
